FAERS Safety Report 9272842 (Version 1)
Quarter: 2013Q2

REPORT INFORMATION
  Report Type: Spontaneous
  Country: US (occurrence: US)
  Receive Date: 20130506
  Receipt Date: 20130506
  Transmission Date: 20140414
  Serious: No
  Sender: FDA-Public Use
  Company Number: US-ASTRAZENECA-2012SE34681

PATIENT
  Sex: Male
  Weight: 127 kg

DRUGS (2)
  1. PRILOSEC OTC [Suspect]
     Indication: DYSPEPSIA
     Route: 048
  2. PRILOSEC OTC [Suspect]
     Indication: OVERWEIGHT
     Route: 048

REACTIONS (4)
  - Feeling abnormal [Unknown]
  - Dyspepsia [Unknown]
  - Drug dose omission [Unknown]
  - Off label use [Unknown]
